FAERS Safety Report 7502259-0 (Version None)
Quarter: 2011Q2

REPORT INFORMATION
  Report Type: 
  Country: None (occurrence: None)
  Receive Date: 20110525
  Receipt Date: 20090216
  Transmission Date: 20111010
  Serious: Yes (Other)
  Sender: FDA-Public Use
  Company Number: US-BAYER-200913113NA

PATIENT
  Age: 64 Year
  Sex: Male
  Weight: 111.11 kg

DRUGS (26)
  1. SOMA [Concomitant]
     Dosage: 350 MG, TID
  2. HEPARIN [Concomitant]
     Dosage: 10,000 UNITS
     Route: 042
     Dates: start: 20060519, end: 20060519
  3. DARVOCET [Concomitant]
     Route: 048
  4. PROTAMINE SULFATE [Concomitant]
     Dosage: 400 MG TWICE
     Route: 042
     Dates: start: 20060519, end: 20060519
  5. TEMAZ [Concomitant]
     Dosage: 15 MG, HS
     Route: 048
  6. VICODIN [Concomitant]
     Dosage: 7.5/750 MG EVERY 6 HOURS AS NEEDED
     Route: 048
  7. PLAVIX [Concomitant]
     Dosage: 75 MG, QD
  8. NATRECOR [Concomitant]
     Dosage: UNK
     Route: 042
     Dates: start: 20060519, end: 20060519
  9. MORPHINE [Concomitant]
     Dosage: 10 MG
     Route: 042
     Dates: start: 20060519, end: 20060519
  10. LIPITOR [Concomitant]
     Dosage: 40 MG, QD
     Route: 048
  11. LISINOPRIL [Concomitant]
     Dosage: 20 MG, QD
     Route: 048
  12. METOPROLOL [Concomitant]
     Dosage: 25 MG, QD
     Route: 048
  13. NOREPHEDRINE HYDROCHLORIDE [Concomitant]
     Dosage: UNK
     Route: 042
     Dates: start: 20060519, end: 20060519
  14. SUFENTANIL CITRATE [Concomitant]
     Dosage: UNK
     Route: 042
     Dates: start: 20060519, end: 20060519
  15. PLASMA [Concomitant]
     Dosage: 2 UNITS
     Route: 042
     Dates: start: 20060519, end: 20060519
  16. AMARYL [Concomitant]
     Dosage: 4 MG
     Route: 048
  17. INSULIN [Concomitant]
     Dosage: SLIDING SCALE
     Route: 058
  18. ASPIRIN [Concomitant]
     Route: 048
  19. RED BLOOD CELLS [Concomitant]
     Dosage: 3 UNITS
     Route: 042
     Dates: start: 20060519, end: 20060519
  20. TRASYLOL [Suspect]
     Indication: CORONARY ARTERY BYPASS
     Dosage: 200 ML PRIME PUMP
     Route: 050
     Dates: start: 20060519, end: 20060519
  21. METHADONE HCL [Concomitant]
     Dosage: 10 MG, HS
     Route: 048
  22. HEPARIN [Concomitant]
     Route: 042
  23. NORVASC [Concomitant]
     Dosage: 10 MG, QD
  24. DOBUTAMINE HYDROCHLORIDE [Concomitant]
     Dosage: 1.5 MCG/KG
     Route: 042
     Dates: start: 20060519, end: 20060519
  25. PLATELETS [Concomitant]
     Dosage: 1 UNIT
     Route: 042
     Dates: start: 20060519, end: 20060519
  26. EPINEPHRINE [Concomitant]
     Dosage: UNK
     Route: 042
     Dates: start: 20060519, end: 20060519

REACTIONS (8)
  - RENAL FAILURE [None]
  - ANXIETY [None]
  - ANHEDONIA [None]
  - FEAR [None]
  - PAIN [None]
  - DEPRESSION [None]
  - INJURY [None]
  - UNEVALUABLE EVENT [None]
